FAERS Safety Report 21589499 (Version 3)
Quarter: 2023Q2

REPORT INFORMATION
  Report Type: Spontaneous
  Country: JP (occurrence: JP)
  Receive Date: 20221114
  Receipt Date: 20230406
  Transmission Date: 20230721
  Serious: Yes (Life-Threatening, Hospitalization, Other)
  Sender: FDA-Public Use
  Company Number: JP-BAXTER-2022BAX024297

PATIENT
  Age: 69 Year
  Sex: Female

DRUGS (14)
  1. DOXORUBICIN [Suspect]
     Active Substance: DOXORUBICIN
     Indication: Anaplastic large-cell lymphoma
     Dosage: A+CHP THERAPY
     Route: 065
  2. CYCLOPHOSPHAMIDE [Suspect]
     Active Substance: CYCLOPHOSPHAMIDE
     Indication: Anaplastic large-cell lymphoma
     Dosage: AT 11:49 A.M, 750 MG/M2/DAY, (A+CHP THERAPY)
     Route: 041
     Dates: start: 20221013, end: 20221013
  3. CYCLOPHOSPHAMIDE [Suspect]
     Active Substance: CYCLOPHOSPHAMIDE
     Dosage: 750 MG/M2/DAY,(A+CHP THERAPY)
     Route: 041
     Dates: start: 20221109
  4. NEUART [Suspect]
     Active Substance: ANTITHROMBIN III HUMAN
     Indication: Antithrombin III decreased
     Dosage: 1500IU/DAY (FREEZE-DRIED CONCENTRATED HUMAN ANTITHROMBIN 3)
     Route: 065
     Dates: start: 20221013, end: 20221013
  5. BRENTUXIMAB VEDOTIN [Suspect]
     Active Substance: BRENTUXIMAB VEDOTIN
     Indication: Anaplastic large-cell lymphoma
     Dosage: A+CHP THERAPY
     Route: 065
  6. PREDNISOLONE [Suspect]
     Active Substance: PREDNISOLONE
     Indication: Anaplastic large-cell lymphoma
     Dosage: A+CHP THERAPY
     Route: 065
  7. PREDNISOLONE [Concomitant]
     Active Substance: PREDNISOLONE
     Indication: Anaplastic large-cell lymphoma
     Dosage: UNK
     Route: 065
  8. FUNGIZONE [Concomitant]
     Active Substance: AMPHOTERICIN B
     Indication: Oral candidiasis
     Dosage: 4 ML/DAY
     Route: 048
     Dates: start: 20220920
  9. TRAZODONE [Concomitant]
     Active Substance: TRAZODONE HYDROCHLORIDE
     Indication: Insomnia
     Dosage: 25 MG/DAY
     Route: 048
     Dates: start: 20220918
  10. DAYVIGO [Concomitant]
     Active Substance: LEMBOREXANT
     Indication: Insomnia
     Dosage: 5 MG/DAY
     Route: 048
     Dates: start: 20220918
  11. AMITIZA [Concomitant]
     Active Substance: LUBIPROSTONE
     Indication: Constipation
     Dosage: 48 MCG/DAY
     Route: 048
  12. SULFAMETHOXAZOLE\TRIMETHOPRIM [Concomitant]
     Active Substance: SULFAMETHOXAZOLE\TRIMETHOPRIM
     Indication: Pneumocystis jirovecii pneumonia
     Dosage: 1 DOSAGE FORM/DAY
     Route: 048
     Dates: start: 20220917
  13. LANSOPRAZOLE [Concomitant]
     Active Substance: LANSOPRAZOLE
     Indication: Prophylaxis against gastrointestinal ulcer
     Dosage: 15 MG/DAY
     Route: 048
     Dates: start: 20220831
  14. MAGNESIUM OXIDE [Concomitant]
     Active Substance: MAGNESIUM OXIDE
     Indication: Constipation
     Dosage: 990 MG/DAY
     Route: 048
     Dates: start: 20220916

REACTIONS (3)
  - Anaphylactic reaction [Recovered/Resolved]
  - Chills [Recovered/Resolved]
  - Dyspnoea [Recovered/Resolved]

NARRATIVE: CASE EVENT DATE: 20221013
